FAERS Safety Report 5158813-7 (Version None)
Quarter: 2006Q4

REPORT INFORMATION
  Report Type: 
  Country: None (occurrence: None)
  Receive Date: 20061128
  Receipt Date: 20061116
  Transmission Date: 20070319
  Serious: Yes (Hospitalization)
  Sender: FDA-Public Use
  Company Number: FR-ELI_LILLY_AND_COMPANY-FR200611003141

PATIENT
  Age: 83 Year
  Sex: Female

DRUGS (7)
  1. FORTEO [Suspect]
     Indication: OSTEOPOROSIS
     Dosage: 20 UG, DAILY (1/D)
     Route: 058
     Dates: start: 20051207
  2. CORDARONE                               /NET/ [Concomitant]
  3. HYDROCORTISONE [Concomitant]
  4. LASIX [Concomitant]
     Dosage: 500 MG, UNK
  5. TRIATEC                                 /FRA/ [Concomitant]
  6. SERETIDE [Concomitant]
  7. PREVISCAN [Concomitant]

REACTIONS (2)
  - ACUTE PULMONARY OEDEMA [None]
  - BRONCHITIS [None]
